FAERS Safety Report 4505539-6 (Version None)
Quarter: 2004Q4

REPORT INFORMATION
  Report Type: 
  Country: None (occurrence: None)
  Receive Date: 20041119
  Receipt Date: 20040803
  Transmission Date: 20050328
  Serious: No
  Sender: FDA-Public Use
  Company Number: US-GLAXOSMITHKLINE-A0520724A

PATIENT
  Age: 80 Year
  Sex: Male
  Weight: 46.8 kg

DRUGS (4)
  1. AVODART [Suspect]
     Indication: BENIGN PROSTATIC HYPERPLASIA
     Dosage: .5MG PER DAY
     Route: 048
  2. TENORMIN [Concomitant]
  3. NORVASC [Concomitant]
  4. ZOCOR [Concomitant]

REACTIONS (6)
  - BREAST TENDERNESS [None]
  - CHEST PAIN [None]
  - FATIGUE [None]
  - GYNAECOMASTIA [None]
  - HYPERTROPHY BREAST [None]
  - MICTURITION URGENCY [None]
